FAERS Safety Report 24764579 (Version 1)
Quarter: 2024Q4

REPORT INFORMATION
  Report Type: Spontaneous
  Country: US (occurrence: US)
  Receive Date: 20241223
  Receipt Date: 20241223
  Transmission Date: 20250115
  Serious: Yes (Hospitalization, Disabling, Other)
  Sender: MERCK
  Company Number: US-009507513-2412USA006889

PATIENT
  Age: 56 Year
  Sex: Male

DRUGS (4)
  1. KEYTRUDA [Suspect]
     Active Substance: PEMBROLIZUMAB
     Indication: Glioblastoma
     Dosage: UNK
  2. KEYTRUDA [Suspect]
     Active Substance: PEMBROLIZUMAB
     Indication: Renal cancer
     Dosage: UNK UNK, Q3W
     Route: 042
     Dates: start: 202410
  3. CAPRA [Concomitant]
     Dosage: UNK
  4. DEMOXYTOCIN [Concomitant]
     Active Substance: DEMOXYTOCIN

REACTIONS (7)
  - Glioblastoma [Not Recovered/Not Resolved]
  - Illness [Unknown]
  - Gait inability [Not Recovered/Not Resolved]
  - Adrenal disorder [Unknown]
  - Diarrhoea [Unknown]
  - Fatigue [Unknown]
  - Product use in unapproved indication [Unknown]

NARRATIVE: CASE EVENT DATE: 20240101
